FAERS Safety Report 7833253-8 (Version None)
Quarter: 2011Q4

REPORT INFORMATION
  Report Type: 
  Country: None (occurrence: None)
  Receive Date: 20111024
  Receipt Date: 20111017
  Transmission Date: 20120403
  Serious: Yes (Other)
  Sender: FDA-Public Use
  Company Number: AU-JNJFOC-20111008777

PATIENT
  Age: 75 Year
  Sex: Male

DRUGS (1)
  1. DURAGESIC-100 [Suspect]
     Indication: PAIN
     Route: 062

REACTIONS (4)
  - DRUG WITHDRAWAL SYNDROME [None]
  - THERAPEUTIC RESPONSE DECREASED [None]
  - MUSCLE TWITCHING [None]
  - INCORRECT DRUG ADMINISTRATION DURATION [None]
